APPROVED DRUG PRODUCT: ALBUTEROL SULFATE AND IPRATROPIUM BROMIDE
Active Ingredient: ALBUTEROL SULFATE; IPRATROPIUM BROMIDE
Strength: EQ 0.083% BASE;0.017%
Dosage Form/Route: SOLUTION;INHALATION
Application: A202496 | Product #001 | TE Code: AN
Applicant: THE RITEDOSE CORP
Approved: Oct 1, 2012 | RLD: No | RS: No | Type: RX